FAERS Safety Report 17745143 (Version 6)
Quarter: 2020Q3

REPORT INFORMATION
  Report Type: Report from Study
  Country: CN (occurrence: CN)
  Receive Date: 20200504
  Receipt Date: 20200710
  Transmission Date: 20201102
  Serious: Yes (Life-Threatening, Hospitalization)
  Sender: FDA-Public Use
  Company Number: CN-BEIGENE-BGN-2020-000714

PATIENT

DRUGS (5)
  1. CAFFEIC ACID TABLETS [Concomitant]
     Indication: PLATELET DISORDER
     Dosage: 0.4 MILLIGRAM, TID
     Route: 048
     Dates: start: 20200114
  2. BGB?3111 [Suspect]
     Active Substance: ZANUBRUTINIB
     Dosage: 160 MILLIGRAM, BID
     Route: 048
     Dates: start: 20200410, end: 20200507
  3. POTASSIUM CHLORIDE. [Concomitant]
     Active Substance: POTASSIUM CHLORIDE
     Indication: MINERAL SUPPLEMENTATION
     Dosage: 500 MILLIGRAM, TID
     Route: 048
     Dates: start: 20200413, end: 20200428
  4. BGB?3111 [Suspect]
     Active Substance: ZANUBRUTINIB
     Indication: CHRONIC LYMPHOCYTIC LEUKAEMIA
     Dosage: 160 MILLIGRAM, BID
     Route: 048
     Dates: start: 20200319
  5. DIAMINE [Concomitant]
     Indication: PROPHYLAXIS
     Dosage: 150 MILLIGRAM, TID
     Route: 048
     Dates: start: 20200413, end: 20200430

REACTIONS (2)
  - Liver function test abnormal [Recovered/Resolved]
  - Febrile neutropenia [Recovered/Resolved]

NARRATIVE: CASE EVENT DATE: 20200430
